FAERS Safety Report 16088464 (Version 2)
Quarter: 2019Q2

REPORT INFORMATION
  Report Type: Spontaneous
  Country: US (occurrence: US)
  Receive Date: 20190319
  Receipt Date: 20190523
  Transmission Date: 20190711
  Serious: No
  Sender: FDA-Public Use
  Company Number: US-PFIZER INC-2019109939

PATIENT
  Age: 63 Year
  Sex: Female
  Weight: 70.75 kg

DRUGS (1)
  1. XELJANZ [Suspect]
     Active Substance: TOFACITINIB CITRATE
     Dosage: 5 MG, 2X/DAY
     Dates: start: 20180514

REACTIONS (3)
  - Swelling [Recovering/Resolving]
  - Musculoskeletal stiffness [Recovered/Resolved]
  - Pain [Unknown]
